FAERS Safety Report 9942081 (Version 1)
Quarter: 2014Q1

REPORT INFORMATION
  Report Type: Report from Study
  Country: US (occurrence: US)
  Receive Date: 20140303
  Receipt Date: 20140303
  Transmission Date: 20141002
  Serious: Yes (Other)
  Sender: FDA-Public Use
  Company Number: US-ABBVIE-13P-163-1041375-00

PATIENT
  Age: 15 Year
  Sex: Female
  Weight: 53.57 kg

DRUGS (2)
  1. HUMIRA [Suspect]
     Indication: CROHN^S DISEASE
  2. PHENERGAN [Concomitant]
     Indication: PRODUCT USED FOR UNKNOWN INDICATION
     Dosage: RARELY

REACTIONS (8)
  - Meningitis [Unknown]
  - Malaise [Unknown]
  - Pneumonia [Unknown]
  - Alopecia [Not Recovered/Not Resolved]
  - Pain [Unknown]
  - Nausea [Unknown]
  - Vomiting [Unknown]
  - White blood cell count increased [Unknown]
